FAERS Safety Report 5827772-3 (Version None)
Quarter: 2008Q3

REPORT INFORMATION
  Report Type: 
  Country: None (occurrence: None)
  Receive Date: 20080728
  Receipt Date: 20080710
  Transmission Date: 20090109
  Serious: Yes (Hospitalization)
  Sender: FDA-Public Use
  Company Number: JPI-P-004184

PATIENT
  Age: 82 Year
  Sex: Female

DRUGS (6)
  1. LUVOX IR (FLUVOXAMINE MALEATE) (TABLETS) (FLUVOXAMINE MALEATE) [Suspect]
     Indication: DEPRESSION
     Dosage: (25 MG, 1 D), ORAL
     Route: 048
     Dates: start: 20080628, end: 20080702
  2. TIAPRIDE HYDROCHLORIDE (TIAPRIDE HYDROCHLORIDE) [Concomitant]
  3. ALENDRONATE SODIUM [Concomitant]
  4. LANSOPRAZOLE [Concomitant]
  5. NITRAZEPAM [Concomitant]
  6. ANTIDIABETIC AGENTS (DRUG USED IN DIABETES) [Concomitant]

REACTIONS (1)
  - INAPPROPRIATE ANTIDIURETIC HORMONE SECRETION [None]
